FAERS Safety Report 8448253-7 (Version None)
Quarter: 2012Q2

REPORT INFORMATION
  Report Type: 
  Country: None (occurrence: None)
  Receive Date: 20120619
  Receipt Date: 20120508
  Transmission Date: 20120825
  Serious: No
  Sender: FDA-Public Use
  Company Number: US-FOUGERA-2012FO001095

PATIENT
  Sex: Female

DRUGS (1)
  1. IMIQUIMOD [Suspect]
     Indication: ACTINIC KERATOSIS
     Route: 061
     Dates: start: 20120430, end: 20120504

REACTIONS (10)
  - APPLICATION SITE PAPULES [None]
  - APPLICATION SITE BLEEDING [None]
  - APPLICATION SITE PAIN [None]
  - APPLICATION SITE DISCHARGE [None]
  - SKIN HYPERTROPHY [None]
  - APPLICATION SITE DISCOLOURATION [None]
  - SKIN INDURATION [None]
  - PYREXIA [None]
  - APPLICATION SITE SCAB [None]
  - INAPPROPRIATE SCHEDULE OF DRUG ADMINISTRATION [None]
